FAERS Safety Report 8297699-9 (Version None)
Quarter: 2012Q2

REPORT INFORMATION
  Report Type: 
  Country: None (occurrence: None)
  Receive Date: 20120419
  Receipt Date: 20120411
  Transmission Date: 20120825
  Serious: Yes (Hospitalization, Other)
  Sender: FDA-Public Use
  Company Number: US-US-EMD SERONO, INC.-7082138

PATIENT
  Sex: Female

DRUGS (6)
  1. MOBIC [Concomitant]
     Indication: ARTHROPATHY
  2. UNSPECIFIED MEDICATION FOR MULTIPLE SCLEROSIS [Concomitant]
     Indication: MULTIPLE SCLEROSIS
  3. REBIF [Suspect]
     Indication: MULTIPLE SCLEROSIS
     Route: 058
     Dates: start: 20090619, end: 20111001
  4. UNSPECIFIED BIPLOAR MEDICATION [Concomitant]
     Indication: BIPOLAR DISORDER
  5. UNSPECIFIED ASTHMA MEDICATION [Concomitant]
     Indication: ASTHMA
  6. REBIF [Suspect]
     Dates: start: 20111201

REACTIONS (8)
  - MULTIPLE SCLEROSIS RELAPSE [None]
  - DEVICE RELATED INFECTION [None]
  - PAIN [None]
  - INFLUENZA [None]
  - WEIGHT DECREASED [None]
  - BLOOD POTASSIUM DECREASED [None]
  - HEADACHE [None]
  - CHILLS [None]
